FAERS Safety Report 20654048 (Version 3)
Quarter: 2022Q2

REPORT INFORMATION
  Report Type: Report from Study
  Country: US (occurrence: US)
  Receive Date: 20220330
  Receipt Date: 20220517
  Transmission Date: 20220720
  Serious: No
  Sender: FDA-Public Use
  Company Number: US-NOVARTISTESTPH-NVSC2022US064915

PATIENT
  Sex: Female

DRUGS (1)
  1. KESIMPTA [Suspect]
     Active Substance: OFATUMUMAB
     Indication: Product used for unknown indication
     Dosage: (20MG/0.4ML), QMO
     Route: 058
     Dates: start: 202110

REACTIONS (12)
  - Paraesthesia [Unknown]
  - Grip strength decreased [Unknown]
  - Feeling abnormal [Unknown]
  - Thinking abnormal [Unknown]
  - Central nervous system lesion [Unknown]
  - Swelling [Unknown]
  - Pain [Unknown]
  - Gait disturbance [Unknown]
  - Pain in extremity [Unknown]
  - Peripheral swelling [Unknown]
  - Influenza like illness [Unknown]
  - Drug ineffective [Unknown]
